FAERS Safety Report 7972474-0 (Version None)
Quarter: 2011Q4

REPORT INFORMATION
  Report Type: 
  Country: None (occurrence: None)
  Receive Date: 20111213
  Receipt Date: 20111207
  Transmission Date: 20120403
  Serious: No
  Sender: FDA-Public Use
  Company Number: US-BIOGENIDEC-2011BI046496

PATIENT
  Age: 31 Year
  Sex: Female

DRUGS (3)
  1. AVONEX [Suspect]
     Route: 030
     Dates: start: 20080401, end: 20080501
  2. AVONEX [Suspect]
     Route: 030
     Dates: start: 20080325, end: 20080401
  3. AVONEX [Suspect]
     Indication: MULTIPLE SCLEROSIS
     Route: 030
     Dates: start: 20080501

REACTIONS (5)
  - ABDOMINAL PAIN UPPER [None]
  - PALPITATIONS [None]
  - URTICARIA [None]
  - ANXIETY [None]
  - NASAL CONGESTION [None]
